FAERS Safety Report 6168555-7 (Version None)
Quarter: 2009Q2

REPORT INFORMATION
  Report Type: 
  Country: None (occurrence: None)
  Receive Date: 20090427
  Receipt Date: 20090423
  Transmission Date: 20091009
  Serious: Yes (Death, Life-Threatening, Hospitalization)
  Sender: FDA-Public Use
  Company Number: IN-BRISTOL-MYERS SQUIBB COMPANY-14600241

PATIENT
  Age: 48 Year
  Sex: Male
  Weight: 64 kg

DRUGS (9)
  1. CISPLATIN [Suspect]
     Indication: NON-SMALL CELL LUNG CANCER STAGE III
     Dosage: 1ST DOSE ON 01APR09 ONCE A WEEK
     Route: 042
     Dates: start: 20090408, end: 20090408
  2. ETOPOSIDE [Suspect]
     Indication: NON-SMALL CELL LUNG CANCER STAGE III
     Dosage: 1ST DOSE ON 01APR09/DAY
     Route: 042
     Dates: start: 20090405, end: 20090405
  3. RADIATION THERAPY [Suspect]
     Indication: NON-SMALL CELL LUNG CANCER STAGE III
     Dosage: 1DF=2GY 1ST DOSE ON 01APR09 2GY DAILY
     Dates: start: 20090415, end: 20090415
  4. FOLIC ACID [Concomitant]
     Dates: start: 20090326, end: 20090401
  5. VITAMIN B-12 [Concomitant]
     Dates: start: 20090326, end: 20090326
  6. DEXAMETHASONE [Concomitant]
     Dates: start: 20090331, end: 20090401
  7. AUGMENTIN '125' [Concomitant]
     Indication: COUGH
     Dosage: CAPSULE
     Dates: start: 20090326, end: 20090401
  8. DERIPHYLLINE [Concomitant]
     Indication: DYSPNOEA
     Dates: start: 20090326, end: 20090401
  9. CODEINE PHOSPHATE [Concomitant]
     Indication: COUGH
     Dates: start: 20090326, end: 20090401

REACTIONS (2)
  - ASPIRATION [None]
  - HAEMATEMESIS [None]
